FAERS Safety Report 7326014-X (Version None)
Quarter: 2011Q1

REPORT INFORMATION
  Report Type: 
  Country: None (occurrence: None)
  Receive Date: 20110302
  Receipt Date: 20110223
  Transmission Date: 20110831
  Serious: Yes (Hospitalization, Other)
  Sender: FDA-Public Use
  Company Number: US-SANOFI-AVENTIS-2010SA066591

PATIENT
  Age: 72 Year
  Sex: Male
  Weight: 113.4 kg

DRUGS (4)
  1. LANTUS [Suspect]
     Indication: TYPE 2 DIABETES MELLITUS
     Dosage: DOSE:85 UNIT(S)
     Route: 058
  2. LANTUS [Suspect]
     Dosage: DOSE:130 UNIT(S)
     Route: 058
     Dates: start: 20070101
  3. SOLOSTAR [Suspect]
     Dates: start: 20070101
  4. LANTUS [Suspect]
     Dosage: DOSE:45 UNIT(S)
     Route: 058

REACTIONS (5)
  - INJECTION SITE HAEMATOMA [None]
  - WEIGHT DECREASED [None]
  - MOBILITY DECREASED [None]
  - INJECTION SITE INDURATION [None]
  - ATRIAL FIBRILLATION [None]
